FAERS Safety Report 7546849-8 (Version None)
Quarter: 2011Q2

REPORT INFORMATION
  Report Type: 
  Country: None (occurrence: None)
  Receive Date: 20110614
  Receipt Date: 20110608
  Transmission Date: 20111010
  Serious: Yes (Other)
  Sender: FDA-Public Use
  Company Number: US-PFIZER INC-2011115595

PATIENT
  Sex: Female
  Weight: 71.202 kg

DRUGS (19)
  1. CODEINE [Suspect]
     Dosage: UNK
  2. TRAMADOL HCL [Suspect]
     Dosage: UNK
  3. METOPROLOL [Concomitant]
     Indication: HYPERTENSION
     Dosage: 50 MG, DAILY
  4. LYRICA [Suspect]
     Indication: FIBROMYALGIA
     Dosage: 50 MG, 1X/DAY
     Route: 048
     Dates: start: 20110527, end: 20110528
  5. AZITHROMYCIN [Suspect]
     Dosage: UNK
  6. MOTRIN [Suspect]
     Dosage: UNK
  7. SOMA [Suspect]
     Dosage: UNK
  8. NEURONTIN [Suspect]
     Indication: NEUROPATHY PERIPHERAL
     Dosage: UNK
  9. PREVACID [Suspect]
     Dosage: UNK
  10. TRIAMTERENE AND HYDROCHLOROTHIAZIDE [Concomitant]
     Indication: HYPERTENSION
     Dosage: UNK, DAILY
     Route: 048
  11. LYRICA [Suspect]
     Indication: NEURALGIA
  12. EFFEXOR [Suspect]
     Dosage: UNK
  13. CIPROFLOXACIN [Suspect]
     Dosage: UNK
  14. IMODIUM MULTI-SYMPTOM RELIEF [Concomitant]
     Indication: IRRITABLE BOWEL SYNDROME
     Dosage: UNK, DAILY
     Route: 048
  15. PREDNISONE [Suspect]
     Dosage: UNK
  16. HYDROCODONE [Suspect]
     Dosage: UNK
  17. VALSARTAN [Concomitant]
     Indication: HYPERTENSION
     Dosage: 80 MG, DAILY
  18. RANITIDINE [Concomitant]
     Indication: GASTROOESOPHAGEAL REFLUX DISEASE
     Dosage: UNK
     Dates: start: 20090401
  19. ASPIRIN [Concomitant]
     Dosage: 325 MG, UNK

REACTIONS (7)
  - HYPOTENSION [None]
  - VISUAL IMPAIRMENT [None]
  - CHEST PAIN [None]
  - SOMNOLENCE [None]
  - ABDOMINAL PAIN UPPER [None]
  - DIZZINESS [None]
  - ACTIVITIES OF DAILY LIVING IMPAIRED [None]
